FAERS Safety Report 21855028 (Version 1)
Quarter: 2023Q1

REPORT INFORMATION
  Report Type: Spontaneous
  Country: US (occurrence: US)
  Receive Date: 20230112
  Receipt Date: 20230112
  Transmission Date: 20230417
  Serious: No
  Sender: FDA-Public Use
  Company Number: US-BRISTOL-MYERS SQUIBB COMPANY-2023-005232

PATIENT
  Age: 82 Year
  Sex: Female

DRUGS (1)
  1. POMALYST [Suspect]
     Active Substance: POMALIDOMIDE
     Indication: Hypomagnesaemia
     Dosage: FREQUENCY : EVERY DAY FOR 21 DAYS THEN OFF FOR 7 DAYS EVERY 28 DAY CYCLE
     Route: 048
     Dates: start: 20220201

REACTIONS (1)
  - Off label use [Unknown]
